FAERS Safety Report 11716845 (Version 3)
Quarter: 2015Q4

REPORT INFORMATION
  Report Type: Spontaneous
  Country: US (occurrence: US)
  Receive Date: 20151104
  Receipt Date: 20151120
  Transmission Date: 20160304
  Serious: No
  Sender: FDA-Public Use
  Company Number: US-ELI_LILLY_AND_COMPANY-US201104000605

PATIENT
  Age: 69 Year
  Sex: Female

DRUGS (18)
  1. FORTEO [Suspect]
     Active Substance: TERIPARATIDE
     Dosage: 20 UG, QD
     Route: 058
  2. FORTEO [Suspect]
     Active Substance: TERIPARATIDE
     Dosage: 20 UG, QD
     Route: 058
  3. FORTEO [Suspect]
     Active Substance: TERIPARATIDE
     Dosage: 20 UG, QD
     Route: 058
  4. PROPRANOLOL [Concomitant]
     Active Substance: PROPRANOLOL\PROPRANOLOL HYDROCHLORIDE
     Indication: BLOOD PRESSURE MEASUREMENT
     Dosage: UNK, EACH MORNING
  5. FORTEO [Suspect]
     Active Substance: TERIPARATIDE
     Dosage: 20 UG, QD
     Route: 058
     Dates: start: 20110427
  6. FORTEO [Suspect]
     Active Substance: TERIPARATIDE
     Dosage: 20 UG, QD
     Route: 058
  7. FORTEO [Suspect]
     Active Substance: TERIPARATIDE
     Dosage: 20 UG, QD
     Route: 058
  8. HYDROCHLOORTHIAZIDE [Concomitant]
     Active Substance: HYDROCHLOROTHIAZIDE
     Indication: BLOOD PRESSURE MEASUREMENT
     Dosage: 25 MG, UNKNOWN
  9. XANAX [Concomitant]
     Active Substance: ALPRAZOLAM
     Indication: NERVOUSNESS
  10. DIURETICS [Concomitant]
     Active Substance: UNSPECIFIED INGREDIENT
     Indication: BLOOD PRESSURE ABNORMAL
  11. FORTEO [Suspect]
     Active Substance: TERIPARATIDE
     Dosage: 20 UG, QD
     Route: 058
  12. FORTEO [Suspect]
     Active Substance: TERIPARATIDE
     Dosage: 20 UG, QD
     Route: 058
  13. FORTEO [Suspect]
     Active Substance: TERIPARATIDE
     Indication: OSTEOPOROSIS
     Dosage: 20 UG, QD
     Route: 058
     Dates: start: 20110330
  14. FORTEO [Suspect]
     Active Substance: TERIPARATIDE
     Dosage: 20 UG, QD
     Route: 058
  15. FORTEO [Suspect]
     Active Substance: TERIPARATIDE
     Dosage: 20 UG, QD
     Route: 058
  16. ALPRAZOLAM. [Concomitant]
     Active Substance: ALPRAZOLAM
     Indication: NERVOUSNESS
  17. FORTEO [Suspect]
     Active Substance: TERIPARATIDE
     Dosage: 20 UG, QD
     Route: 058
  18. FORTEO [Suspect]
     Active Substance: TERIPARATIDE
     Dosage: 20 UG, QD
     Route: 058

REACTIONS (61)
  - Melanocytic naevus [Not Recovered/Not Resolved]
  - Basal cell carcinoma [Unknown]
  - Back pain [Recovered/Resolved]
  - Pollakiuria [Recovered/Resolved]
  - Hordeolum [Unknown]
  - Somnolence [Unknown]
  - Choking sensation [Unknown]
  - Sleep disorder [Unknown]
  - Headache [Unknown]
  - Vomiting [Not Recovered/Not Resolved]
  - Asthenia [Unknown]
  - Nausea [Not Recovered/Not Resolved]
  - Drug dose omission [Unknown]
  - Pain in extremity [Not Recovered/Not Resolved]
  - Pruritus [Not Recovered/Not Resolved]
  - Skin disorder [Not Recovered/Not Resolved]
  - Eye pruritus [Unknown]
  - Stress [Unknown]
  - Feeling abnormal [Not Recovered/Not Resolved]
  - Injection site rash [Unknown]
  - Injection site reaction [Unknown]
  - Depression [Unknown]
  - Injection site pain [Recovered/Resolved]
  - Abdominal distension [Not Recovered/Not Resolved]
  - Vision blurred [Not Recovered/Not Resolved]
  - Nervousness [Unknown]
  - Dizziness [Not Recovered/Not Resolved]
  - Insomnia [Not Recovered/Not Resolved]
  - Incorrect dose administered [Unknown]
  - Skin papilloma [Unknown]
  - Night sweats [Unknown]
  - Skin wrinkling [Unknown]
  - Fear [Recovered/Resolved]
  - Weight decreased [Unknown]
  - Injection site erythema [Not Recovered/Not Resolved]
  - Visual acuity reduced [Unknown]
  - Injection site haemorrhage [Recovered/Resolved]
  - Rash macular [Unknown]
  - Rash generalised [Not Recovered/Not Resolved]
  - Nausea [Not Recovered/Not Resolved]
  - Food poisoning [Unknown]
  - Lethargy [Unknown]
  - Malaise [Not Recovered/Not Resolved]
  - Limb discomfort [Unknown]
  - Musculoskeletal discomfort [Unknown]
  - Eye burns [Unknown]
  - Solar lentigo [Unknown]
  - Rash pruritic [Unknown]
  - Feeling of body temperature change [Not Recovered/Not Resolved]
  - Injury [Recovered/Resolved]
  - Feeling abnormal [Unknown]
  - Headache [Not Recovered/Not Resolved]
  - Injection site pain [Unknown]
  - Eye disorder [Not Recovered/Not Resolved]
  - Eye swelling [Unknown]
  - Performance fear [Unknown]
  - Discomfort [Unknown]
  - Injection site bruising [Not Recovered/Not Resolved]
  - Rash [Unknown]
  - Dry eye [Not Recovered/Not Resolved]
  - Fatigue [Not Recovered/Not Resolved]

NARRATIVE: CASE EVENT DATE: 201103
